FAERS Safety Report 21076829 (Version 1)
Quarter: 2022Q3

REPORT INFORMATION
  Report Type: Spontaneous
  Country: TN (occurrence: None)
  Receive Date: 20220713
  Receipt Date: 20220713
  Transmission Date: 20221027
  Serious: Yes (Hospitalization)
  Sender: FDA-Public Use
  Company Number: TN-Eisai Medical Research-EC-2022-118479

PATIENT
  Age: 72 Year
  Sex: Female
  Weight: 65 kg

DRUGS (2)
  1. HALAVEN [Suspect]
     Active Substance: ERIBULIN MESYLATE
     Indication: Triple negative breast cancer
     Route: 042
     Dates: start: 20220409, end: 2022
  2. HALAVEN [Suspect]
     Active Substance: ERIBULIN MESYLATE
     Route: 042
     Dates: start: 2022, end: 20220521

REACTIONS (7)
  - Altered state of consciousness [Unknown]
  - Cerebral haemorrhage [Unknown]
  - Dysarthria [Unknown]
  - Balance disorder [Unknown]
  - Anaemia [Unknown]
  - Diplopia [Unknown]
  - Neutropenia [Unknown]

NARRATIVE: CASE EVENT DATE: 20220101
